FAERS Safety Report 20793996 (Version 1)
Quarter: 2022Q2

REPORT INFORMATION
  Report Type: Spontaneous
  Country: IT (occurrence: IT)
  Receive Date: 20220506
  Receipt Date: 20220506
  Transmission Date: 20220721
  Serious: Yes (Other)
  Sender: FDA-Public Use
  Company Number: None

PATIENT
  Age: 82 Year
  Sex: Male
  Weight: 101 kg

DRUGS (7)
  1. FINASTERIDE [Suspect]
     Active Substance: FINASTERIDE
     Indication: Benign prostatic hyperplasia
     Dosage: UNIT DOSE: 5 MG, FREQUENCY TIME : 1 DAY, DURATION : 5 DAY
     Route: 048
     Dates: start: 20170101, end: 20220325
  2. XARELTO [Concomitant]
     Active Substance: RIVAROXABAN
     Dosage: UNIT DOSE: 20 MG, STRENGTH: 20 MG
     Route: 048
     Dates: start: 20210731
  3. SILODOSIN [Concomitant]
     Active Substance: SILODOSIN
     Dosage: STRENGTH: 8 MG
     Route: 048
  4. ESOMEPRAZOLE [Concomitant]
     Active Substance: ESOMEPRAZOLE
     Route: 048
  5. ATORVASTATIN CALCIUM [Concomitant]
     Active Substance: ATORVASTATIN CALCIUM
     Dosage: UNIT DOSE: 20 MG
     Route: 048
  6. ASPIRIN [Concomitant]
     Active Substance: ASPIRIN
     Dosage: UNIT DOSE: 100 MG, STRENGTH: 100 MG, DURATION 5 YEARS
     Route: 048
     Dates: start: 20160101, end: 20210731
  7. BISOPROLOL [Concomitant]
     Active Substance: BISOPROLOL
     Dosage: STRENGTH: 2.5 MG
     Route: 048

REACTIONS (1)
  - Breast cancer [Recovering/Resolving]

NARRATIVE: CASE EVENT DATE: 20220216
